FAERS Safety Report 9284029 (Version 1)
Quarter: 2013Q2

REPORT INFORMATION
  Report Type: Report from Study
  Country: GB (occurrence: GB)
  Receive Date: 20130510
  Receipt Date: 20130510
  Transmission Date: 20140414
  Serious: Yes (Hospitalization)
  Sender: FDA-Public Use
  Company Number: GB-BAXTER-2012BAX003097

PATIENT
  Age: 75 Year
  Sex: Male

DRUGS (8)
  1. CYCLOPHOSPHAMIDE INJECTION 1G [Suspect]
     Indication: CLEAR CELL RENAL CELL CARCINOMA
     Route: 065
     Dates: start: 20120119
  2. CYCLOPHOSPHAMIDE INJECTION 1G [Suspect]
     Indication: PRODUCT USED FOR UNKNOWN INDICATION
  3. SUNITINIB [Suspect]
     Indication: CLEAR CELL RENAL CELL CARCINOMA
     Route: 065
     Dates: start: 20111215, end: 20120326
  4. G-CSF [Suspect]
     Indication: CLEAR CELL RENAL CELL CARCINOMA
     Route: 065
     Dates: end: 20120308
  5. ASPIRIN [Concomitant]
     Indication: PROPHYLAXIS
     Route: 048
     Dates: start: 20091031, end: 20120326
  6. RAMIPRIL [Concomitant]
     Indication: HYPERTENSION
     Route: 065
     Dates: start: 20091130
  7. SIMVASTATIN [Concomitant]
     Indication: PROPHYLAXIS
     Route: 065
     Dates: start: 20091130
  8. RANITIDINE [Concomitant]
     Indication: PROPHYLAXIS
     Route: 065
     Dates: start: 20111215

REACTIONS (2)
  - Haematemesis [Recovered/Resolved]
  - Oesophagitis [Unknown]
